FAERS Safety Report 16957737 (Version 1)
Quarter: 2019Q4

REPORT INFORMATION
  Report Type: Spontaneous
  Country: US (occurrence: US)
  Receive Date: 20190905
  Receipt Date: 20190905
  Transmission Date: 20200122
  Serious: Yes (Disabling)
  Sender: FDA-Public Use
  Company Number: None

PATIENT
  Age: 82 Year
  Sex: Female
  Weight: 53.98 kg

DRUGS (3)
  1. BREO ELLIPTA [Suspect]
     Active Substance: FLUTICASONE FUROATE\VILANTEROL TRIFENATATE
     Indication: CHRONIC OBSTRUCTIVE PULMONARY DISEASE
     Dosage: ?          QUANTITY:100/25;?
     Route: 055
     Dates: start: 20180406, end: 20190221
  2. SPIRIVIA RESPIMAT [Concomitant]
  3. PROAIR HFA [Concomitant]
     Active Substance: ALBUTEROL SULFATE

REACTIONS (10)
  - Weight decreased [None]
  - Feeding disorder [None]
  - Gastric haemorrhage [None]
  - Oropharyngeal pain [None]
  - Lip swelling [None]
  - Asthenia [None]
  - Deafness [None]
  - Swollen tongue [None]
  - Stomatitis [None]
  - Swelling face [None]

NARRATIVE: CASE EVENT DATE: 20181116
